FAERS Safety Report 9278767 (Version 1)
Quarter: 2013Q2

REPORT INFORMATION
  Report Type: Spontaneous
  Country: NL (occurrence: NL)
  Receive Date: 20130508
  Receipt Date: 20130508
  Transmission Date: 20140414
  Serious: Yes (Other)
  Sender: FDA-Public Use
  Company Number: NL-PFIZER INC-2013139414

PATIENT
  Age: 17 Year
  Sex: Female

DRUGS (2)
  1. VENLAFAXINE HCL [Suspect]
     Indication: DEPRESSION
     Dosage: 37.5 MG, 1X/DAY
     Dates: start: 20130315, end: 20130316
  2. SEROQUEL [Interacting]
     Dosage: 2.5 DF, 1X/DAY
     Dates: start: 20120731

REACTIONS (3)
  - Drug interaction [Recovered/Resolved]
  - Feeling of body temperature change [Recovered/Resolved]
  - Syncope [Recovered/Resolved]
